FAERS Safety Report 9771776 (Version 1)
Quarter: 2013Q3

REPORT INFORMATION
  Report Type: Spontaneous
  Country: BR (occurrence: None)
  Receive Date: 20130916
  Receipt Date: 20130916
  Transmission Date: 20140515
  Serious: Yes (Other)
  Sender: FDA-Public Use
  Company Number: VAL_02543_2013

PATIENT
  Sex: Female
  Weight: 56 kg

DRUGS (7)
  1. PARLODEL (PARLODEL-BROMOCRIPTIN MESILATE) (UNSPECIFIED) [Suspect]
     Indication: BLOOD PROLACTIN INCREASED
     Dosage: [A HALF TABLET OF 2.5 MG, DAILY]
     Route: 048
     Dates: start: 2010
  2. PROZAC [Concomitant]
  3. RISPERIDONE [Concomitant]
  4. EVISTA [Concomitant]
  5. OSCAL D /00944201/ [Concomitant]
  6. PURAN T4 [Concomitant]
  7. LIPITOR [Concomitant]

REACTIONS (2)
  - Psychomotor hyperactivity [None]
  - Blood prolactin increased [None]
